FAERS Safety Report 6958158-6 (Version None)
Quarter: 2010Q3

REPORT INFORMATION
  Report Type: 
  Country: None (occurrence: None)
  Receive Date: 20100831
  Receipt Date: 20100819
  Transmission Date: 20110219
  Serious: Yes (Other)
  Sender: FDA-Public Use
  Company Number: JP-PFIZER INC-2010104228

PATIENT
  Sex: Female

DRUGS (4)
  1. AZULFIDINE [Suspect]
     Dosage: 1000 MG PER DAY
     Route: 048
     Dates: start: 20100730
  2. PREDONINE [Concomitant]
     Dosage: 10MG PER DAY
     Route: 048
     Dates: start: 20100730
  3. SOLETON [Concomitant]
     Dosage: 240 MG PER DAY
     Route: 048
     Dates: start: 20100730
  4. GASTER [Concomitant]
     Dosage: 40 MG PER DAY
     Route: 048
     Dates: start: 20100730

REACTIONS (5)
  - DIARRHOEA [None]
  - LIVER DISORDER [None]
  - PRURITUS [None]
  - PYREXIA [None]
  - TOXIC SKIN ERUPTION [None]
